FAERS Safety Report 25841654 (Version 1)
Quarter: 2025Q3

REPORT INFORMATION
  Report Type: Report from Study
  Country: US (occurrence: US)
  Receive Date: 20250924
  Receipt Date: 20250924
  Transmission Date: 20251021
  Serious: Yes (Hospitalization)
  Sender: TAIHO ONCOLOGY INC
  Company Number: US-TAIHOP-2025-010045

PATIENT
  Age: 77 Year
  Sex: Male
  Weight: 84.82 kg

DRUGS (3)
  1. INQOVI [Suspect]
     Active Substance: CEDAZURIDINE\DECITABINE
     Indication: Myelodysplastic syndrome
     Dosage: 135 MG (DECITABINE 35 MG AND CEDAZURIDINE 100 MG)?CYCLE: 1?TAKE 1 TABLET ORALLY DAILY, PRIOR TO BREA
     Route: 048
  2. CRESTOR [Concomitant]
     Active Substance: ROSUVASTATIN CALCIUM
     Indication: Product used for unknown indication
  3. METOPROLOL [Concomitant]
     Active Substance: METOPROLOL
     Indication: Product used for unknown indication

REACTIONS (2)
  - Cytopenia [Not Recovered/Not Resolved]
  - Inappropriate schedule of product administration [Unknown]
